FAERS Safety Report 9773707 (Version 1)
Quarter: 2013Q4

REPORT INFORMATION
  Report Type: Spontaneous
  Country: FR (occurrence: None)
  Receive Date: 20131218
  Receipt Date: 20131218
  Transmission Date: 20140711
  Serious: Yes (Hospitalization)
  Sender: FDA-Public Use
  Company Number: SYM-2013-13880

PATIENT
  Age: 75 Year
  Sex: Male

DRUGS (3)
  1. FLAGYL [Suspect]
     Indication: PNEUMONIA
     Route: 048
     Dates: start: 201308, end: 201308
  2. CEFTRIAXONE [Suspect]
     Indication: PNEUMONIA
     Route: 048
     Dates: start: 201308, end: 201308
  3. ZITHROMAX [Suspect]
     Indication: PNEUMONIA
     Route: 048
     Dates: start: 201308, end: 201308

REACTIONS (3)
  - Clostridium difficile colitis [None]
  - General physical health deterioration [None]
  - Anaemia [None]
